FAERS Safety Report 10335832 (Version 1)
Quarter: 2014Q3

REPORT INFORMATION
  Report Type: Spontaneous
  Country: US (occurrence: US)
  Receive Date: 20140723
  Receipt Date: 20140723
  Transmission Date: 20150326
  Serious: No
  Sender: FDA-Public Use
  Company Number: US-BRISTOL-MYERS SQUIBB COMPANY-19139823

PATIENT
  Age: 83 Year
  Sex: Female
  Weight: 68.03 kg

DRUGS (6)
  1. LOSARTAN [Concomitant]
     Active Substance: LOSARTAN
  2. SYNTHROID [Concomitant]
     Active Substance: LEVOTHYROXINE SODIUM
  3. COUMADIN [Suspect]
     Active Substance: WARFARIN SODIUM
     Dosage: DOSE FREQ:8MG/7DAYS/WEEK TO 8MG/5DAYS/WEEK AND 6 MG/3DAYS/WEEK?6MG/3DAYS/WEEK + 8MG THE OTHER DAYS
     Dates: start: 20120823
  4. TIKOSYN [Concomitant]
     Active Substance: DOFETILIDE
     Indication: ATRIAL FIBRILLATION
  5. WARFARIN SODIUM. [Suspect]
     Active Substance: WARFARIN SODIUM
  6. HYDROCHLOROTHIAZIDE. [Concomitant]
     Active Substance: HYDROCHLOROTHIAZIDE
     Indication: BLOOD PRESSURE

REACTIONS (1)
  - International normalised ratio fluctuation [Unknown]
